FAERS Safety Report 9653395 (Version 1)
Quarter: 2013Q4

REPORT INFORMATION
  Report Type: Spontaneous
  Country: US (occurrence: None)
  Receive Date: 20131028
  Receipt Date: 20131028
  Transmission Date: 20140711
  Serious: Yes (Other)
  Sender: FDA-Public Use
  Company Number: None

PATIENT
  Age: 30 Year
  Sex: Male
  Weight: 158.76 kg

DRUGS (1)
  1. INVEGA SUSTENNA [Suspect]
     Route: 030

REACTIONS (2)
  - Product label issue [None]
  - Hypopnoea [None]
